FAERS Safety Report 16461300 (Version 1)
Quarter: 2019Q2

REPORT INFORMATION
  Report Type: Spontaneous
  Country: GB (occurrence: GB)
  Receive Date: 20190620
  Receipt Date: 20190620
  Transmission Date: 20190711
  Serious: Yes (Other)
  Sender: FDA-Public Use
  Company Number: PHHY2019GB140146

PATIENT

DRUGS (1)
  1. DESFERAL [Suspect]
     Active Substance: DEFEROXAMINE MESYLATE
     Indication: PEARSON^S SYNDROME
     Route: 065

REACTIONS (3)
  - Serum ferritin increased [Unknown]
  - Drug ineffective [Unknown]
  - Product use in unapproved indication [Unknown]
